FAERS Safety Report 8927712 (Version 1)
Quarter: 2012Q4

REPORT INFORMATION
  Report Type: 
  Country: FR (occurrence: FR)
  Receive Date: 20121126
  Receipt Date: 20121126
  Transmission Date: 20130627
  Serious: Yes (Other)
  Sender: FDA-Public Use
  Company Number: FR-BAYER-2012-121195

PATIENT
  Age: 45 Year
  Sex: Female

DRUGS (9)
  1. GLUCOR [Suspect]
     Dosage: Daily dose 150 mg
     Route: 048
     Dates: end: 20120514
  2. VICTOZA [Suspect]
     Dosage: Daily dose 1.8 mg
     Route: 058
     Dates: start: 201106, end: 20120514
  3. GLUCOPHAGE [Suspect]
     Dosage: Daily dose 2000 mg
     Route: 048
     Dates: start: 2004, end: 20120514
  4. DIAMICRON [Suspect]
     Dosage: Daily dose 30 mg
     Route: 048
     Dates: end: 20120514
  5. HUMALOG [Concomitant]
  6. LEVEMIR [Concomitant]
     Dosage: 40 iu, UNK
  7. SPECIAFOLDINE [Concomitant]
     Dosage: 5 mg, UNK
  8. FUMAFER [Concomitant]
  9. TRANSIPEG FORTE [Concomitant]

REACTIONS (2)
  - Abortion spontaneous [Recovered/Resolved]
  - Exposure during pregnancy [None]
